FAERS Safety Report 7957578-0 (Version None)
Quarter: 2011Q4

REPORT INFORMATION
  Report Type: 
  Country: None (occurrence: None)
  Receive Date: 20111205
  Receipt Date: 20111130
  Transmission Date: 20120403
  Serious: Yes (Other)
  Sender: FDA-Public Use
  Company Number: JP-GLAXOSMITHKLINE-B0766600A

PATIENT
  Age: 83 Year

DRUGS (1)
  1. ARIXTRA [Suspect]
     Indication: EMBOLISM VENOUS
     Dosage: 2.5MG PER DAY
     Route: 058
     Dates: start: 20111122, end: 20111129

REACTIONS (4)
  - HAEMOGLOBIN DECREASED [None]
  - ARTHRALGIA [None]
  - MUSCLE HAEMORRHAGE [None]
  - MUSCULOSKELETAL DISORDER [None]
